FAERS Safety Report 7010143-4 (Version None)
Quarter: 2010Q3

REPORT INFORMATION
  Report Type: 
  Country: None (occurrence: None)
  Receive Date: 20100923
  Receipt Date: 20100914
  Transmission Date: 20110219
  Serious: Yes (Other)
  Sender: FDA-Public Use
  Company Number: US-PFIZER INC-2010116644

PATIENT
  Sex: Female
  Weight: 38.095 kg

DRUGS (2)
  1. REVATIO [Suspect]
     Indication: PULMONARY HYPERTENSION
     Dosage: 20 MG, 3X/DAY
     Route: 048
     Dates: start: 20090101
  2. PREDNISONE [Concomitant]
     Dosage: UNK

REACTIONS (3)
  - RETINAL OEDEMA [None]
  - VISUAL FIELD DEFECT [None]
  - VISUAL IMPAIRMENT [None]
